FAERS Safety Report 21460328 (Version 1)
Quarter: 2022Q4

REPORT INFORMATION
  Report Type: Spontaneous
  Country: AT (occurrence: AT)
  Receive Date: 20221014
  Receipt Date: 20221014
  Transmission Date: 20230113
  Serious: Yes (Death, Hospitalization)
  Sender: FDA-Public Use
  Company Number: AT-MLMSERVICE-20220929-3824983-1

PATIENT
  Age: 52 Year
  Sex: Male

DRUGS (14)
  1. PREDNISOLONE [Suspect]
     Active Substance: PREDNISOLONE
     Indication: Immunosuppression
     Route: 065
  2. TACROLIMUS [Suspect]
     Active Substance: TACROLIMUS
     Indication: Immunosuppression
     Route: 065
  3. AZATHIOPRINE [Suspect]
     Active Substance: AZATHIOPRINE
     Indication: Pulmonary vasculitis
     Route: 065
  4. AZATHIOPRINE [Suspect]
     Active Substance: AZATHIOPRINE
     Indication: Renal vasculitis
  5. AZATHIOPRINE [Suspect]
     Active Substance: AZATHIOPRINE
     Indication: Ocular vasculitis
  6. AZATHIOPRINE [Suspect]
     Active Substance: AZATHIOPRINE
     Indication: Anti-neutrophil cytoplasmic antibody positive vasculitis
  7. RITUXIMAB [Suspect]
     Active Substance: RITUXIMAB
     Indication: Anti-neutrophil cytoplasmic antibody positive vasculitis
     Route: 065
  8. RITUXIMAB [Suspect]
     Active Substance: RITUXIMAB
     Indication: Pulmonary vasculitis
  9. RITUXIMAB [Suspect]
     Active Substance: RITUXIMAB
     Indication: Ocular vasculitis
  10. RITUXIMAB [Suspect]
     Active Substance: RITUXIMAB
     Indication: Renal vasculitis
  11. SULFAMETROLE\TRIMETHOPRIM [Concomitant]
     Active Substance: SULFAMETROLE\TRIMETHOPRIM
     Indication: Prophylaxis
     Dosage: 3 TIMES A WEEK
     Route: 065
  12. VALGANCICLOVIR [Concomitant]
     Active Substance: VALGANCICLOVIR
     Indication: Prophylaxis
     Route: 065
  13. CLINDAMYCIN [Concomitant]
     Active Substance: CLINDAMYCIN
     Indication: Evidence based treatment
     Route: 048
  14. CLINDAMYCIN [Concomitant]
     Active Substance: CLINDAMYCIN
     Indication: Abscess

REACTIONS (6)
  - Cutaneous nocardiosis [Fatal]
  - Pulmonary nocardiosis [Fatal]
  - Cerebral nocardiosis [Fatal]
  - COVID-19 pneumonia [Fatal]
  - Acute respiratory distress syndrome [Fatal]
  - Multiple organ dysfunction syndrome [Fatal]
